FAERS Safety Report 20859135 (Version 3)
Quarter: 2022Q4

REPORT INFORMATION
  Report Type: Spontaneous
  Country: CA (occurrence: CA)
  Receive Date: 20220523
  Receipt Date: 20221001
  Transmission Date: 20230112
  Serious: Yes (Other)
  Sender: FDA-Public Use
  Company Number: CA-AUROBINDO-AUR-APL-2022-017960

PATIENT
  Age: 60 Year
  Sex: Male

DRUGS (15)
  1. MIRTAZAPINE [Suspect]
     Active Substance: MIRTAZAPINE
     Indication: Neuropathic pruritus
     Dosage: 15 MILLIGRAM
     Route: 065
  2. PREGABALIN [Suspect]
     Active Substance: PREGABALIN
     Indication: Neuropathic pruritus
     Dosage: 50 MILLIGRAM, TWO TIMES A DAY
     Route: 065
  3. PREGABALIN [Suspect]
     Active Substance: PREGABALIN
     Dosage: 50 MILLIGRAM, ONCE EVERY 5 TH DAY
     Route: 065
  4. VENLAFAXINE [Suspect]
     Active Substance: VENLAFAXINE HYDROCHLORIDE
     Indication: Neuropathic pruritus
     Dosage: 150 MILLIGRAM, ONCE A DAY
     Route: 065
  5. CAMPHOR [Suspect]
     Active Substance: CAMPHOR
     Indication: Pruritus
     Dosage: UNK
     Route: 061
  6. CAMPHOR [Suspect]
     Active Substance: CAMPHOR
     Indication: Neuropathic pruritus
  7. CAPSAICIN [Suspect]
     Active Substance: CAPSAICIN
     Indication: Pruritus
     Dosage: UNK
     Route: 061
  8. CAPSAICIN [Suspect]
     Active Substance: CAPSAICIN
     Indication: Neuropathic pruritus
  9. HYDROXYZINE [Suspect]
     Active Substance: HYDROXYZINE HYDROCHLORIDE
     Indication: Neuropathic pruritus
     Dosage: 25 MILLIGRAM, 3 TIMES A DAY
     Route: 065
  10. MENTHOL [Suspect]
     Active Substance: MENTHOL
     Indication: Neuropathic pruritus
     Dosage: UNK
     Route: 061
  11. NORTRIPTYLINE [Suspect]
     Active Substance: NORTRIPTYLINE
     Indication: Neuropathic pruritus
     Dosage: 10 MILLIGRAM
     Route: 065
  12. NABIXIMOLS [Suspect]
     Active Substance: NABIXIMOLS
     Indication: Pruritus
     Dosage: 2.43 MILLIGRAM
     Route: 048
  13. NABIXIMOLS [Suspect]
     Active Substance: NABIXIMOLS
     Dosage: 2.75 MILLIGRAM
     Route: 048
  14. NABIXIMOLS [Suspect]
     Active Substance: NABIXIMOLS
     Dosage: 1 DOSAGE FORM, EVERY 5TH DAY
     Route: 048
  15. NABIXIMOLS [Suspect]
     Active Substance: NABIXIMOLS
     Dosage: 1 DOSAGE FORM, TWO TIMES A DAY
     Route: 048

REACTIONS (4)
  - Anticholinergic syndrome [Unknown]
  - Sedation [Unknown]
  - Drug ineffective [Unknown]
  - Off label use [Unknown]
